FAERS Safety Report 18431543 (Version 1)
Quarter: 2020Q4

REPORT INFORMATION
  Report Type: Spontaneous
  Country: ES (occurrence: ES)
  Receive Date: 20201027
  Receipt Date: 20201027
  Transmission Date: 20210114
  Serious: Yes (Other)
  Sender: FDA-Public Use
  Company Number: ES-CELLTRION-2020-ES-000134

PATIENT
  Age: 57 Year
  Sex: Female

DRUGS (1)
  1. LAMOTRIGINE (NON-SPECIFIC) [Suspect]
     Active Substance: LAMOTRIGINE
     Indication: PETIT MAL EPILEPSY
     Dosage: UP TO 100 MG/DAY

REACTIONS (2)
  - Hypersensitivity [Unknown]
  - Pulmonary granuloma [Unknown]
